FAERS Safety Report 6812501-7 (Version None)
Quarter: 2010Q3

REPORT INFORMATION
  Report Type: 
  Country: None (occurrence: None)
  Receive Date: 20100701
  Receipt Date: 20100621
  Transmission Date: 20110219
  Serious: Yes (Hospitalization)
  Sender: FDA-Public Use
  Company Number: AU-MYLANLABS-2010S1010897

PATIENT
  Age: 35 Year
  Sex: Female

DRUGS (6)
  1. ZUCLOPENTHIXOL [Interacting]
     Indication: DEPRESSION
     Route: 030
  2. FLUOXETINE [Suspect]
     Indication: DEPRESSION
     Dosage: 80MG IN THE MORNING
     Route: 065
  3. FLUOXETINE [Interacting]
     Dosage: 60MG IN THE MORNING
     Route: 065
  4. QUETIAPINE [Concomitant]
     Indication: OVERDOSE
     Dosage: APPROXIMATELY 1500MG
     Route: 065
  5. NITRAZEPAM [Concomitant]
     Indication: OVERDOSE
     Dosage: APPROXIMATELY 375MG
     Route: 065
  6. QUETIAPINE [Concomitant]
     Route: 065

REACTIONS (2)
  - DRUG INTERACTION [None]
  - DYSTONIA [None]
